FAERS Safety Report 25462419 (Version 1)
Quarter: 2025Q2

REPORT INFORMATION
  Report Type: Spontaneous
  Country: JP (occurrence: JP)
  Receive Date: 20250620
  Receipt Date: 20250620
  Transmission Date: 20250717
  Serious: Yes (Other)
  Sender: MERCK SHARP & DOHME LLC
  Company Number: JP-009507513-2275628

PATIENT
  Age: 52 Year
  Sex: Female

DRUGS (5)
  1. KEYTRUDA [Suspect]
     Active Substance: PEMBROLIZUMAB
     Route: 041
  2. CARBOPLATIN [Concomitant]
     Active Substance: CARBOPLATIN
     Indication: Nodule
  3. PACLITAXEL [Concomitant]
     Active Substance: PACLITAXEL
     Indication: Nodule
  4. KEY + Epirubicin hydrochloride [Concomitant]
     Indication: Nodule
  5. cyclophosphamide hydrate (EC) [Concomitant]
     Indication: Nodule

REACTIONS (2)
  - Radiotherapy [Unknown]
  - Nodule [Unknown]
